FAERS Safety Report 6593437-6 (Version None)
Quarter: 2010Q1

REPORT INFORMATION
  Report Type: 
  Country: None (occurrence: None)
  Receive Date: 20100222
  Receipt Date: 20090423
  Transmission Date: 20100710
  Serious: No
  Sender: FDA-Public Use
  Company Number: US-BRISTOL-MYERS SQUIBB COMPANY-14597652

PATIENT
  Age: 40 Year
  Sex: Female

DRUGS (14)
  1. ORENCIA [Suspect]
     Dates: start: 20090301
  2. EFFEXOR [Concomitant]
  3. LITHIUM [Concomitant]
  4. METHOCARBAMOL [Concomitant]
  5. ASPIRIN [Concomitant]
  6. MIRALAX [Concomitant]
  7. MULTI-VITAMIN [Concomitant]
  8. TRAMADOL [Concomitant]
  9. ARAVA [Concomitant]
  10. MOBIC [Concomitant]
  11. LORTAB [Concomitant]
  12. ADDERALL 30 [Concomitant]
  13. VALIUM [Concomitant]
  14. PROVENTIL [Concomitant]

REACTIONS (2)
  - ARTHRALGIA [None]
  - DYSPNOEA [None]
